FAERS Safety Report 4847266-1 (Version None)
Quarter: 2005Q4

REPORT INFORMATION
  Report Type: 
  Country: None (occurrence: None)
  Receive Date: 20051207
  Receipt Date: 20051205
  Transmission Date: 20060501
  Serious: Yes (Other)
  Sender: FDA-Public Use
  Company Number: 2005023957

PATIENT
  Age: 39 Year
  Sex: Male

DRUGS (1)
  1. QUILONUM RETARD [Suspect]
     Dosage: 3TAB PER DAY
     Route: 048

REACTIONS (4)
  - DEHYDRATION [None]
  - DIARRHOEA [None]
  - DRUG ABUSER [None]
  - PSYCHOMOTOR RETARDATION [None]
